FAERS Safety Report 8427882-0 (Version None)
Quarter: 2012Q2

REPORT INFORMATION
  Report Type: 
  Country: None (occurrence: None)
  Receive Date: 20120611
  Receipt Date: 20120607
  Transmission Date: 20120825
  Serious: Yes (Hospitalization)
  Sender: FDA-Public Use
  Company Number: CA-ROCHE-1072609

PATIENT
  Age: 47 Year
  Sex: Male

DRUGS (6)
  1. VEMURAFENIB [Suspect]
     Route: 048
     Dates: start: 20120520
  2. FISH OIL [Concomitant]
     Dates: start: 20010101
  3. POTASSIUM SUPPLEMENT NOS [Concomitant]
     Dates: start: 20120208
  4. VEMURAFENIB [Suspect]
     Indication: MALIGNANT MELANOMA
     Dosage: DATE OF LAST DOSE:18/MAY/2012
     Route: 048
     Dates: start: 20120516, end: 20120519
  5. ALFUZOSIN HCL [Concomitant]
     Dates: start: 20120416
  6. VITAMIN D [Concomitant]
     Dates: start: 20010101

REACTIONS (1)
  - ANAL ABSCESS [None]
